FAERS Safety Report 20897981 (Version 1)
Quarter: 2022Q2

REPORT INFORMATION
  Report Type: Spontaneous
  Country: DK (occurrence: DK)
  Receive Date: 20220531
  Receipt Date: 20220531
  Transmission Date: 20220721
  Serious: Yes (Hospitalization)
  Sender: FDA-Public Use
  Company Number: None

PATIENT
  Age: 58 Year
  Sex: Female
  Weight: 58 kg

DRUGS (1)
  1. OCREVUS [Suspect]
     Active Substance: OCRELIZUMAB
     Indication: Multiple sclerosis
     Dosage: STRENGTH: 300 MG
     Route: 065
     Dates: start: 20190514, end: 20201215

REACTIONS (6)
  - Bladder pain [Recovered/Resolved]
  - Oral disorder [Recovered/Resolved]
  - Eye disorder [Recovered/Resolved]
  - Bladder disorder [Recovered/Resolved]
  - Blood urine present [Recovered/Resolved]
  - Female reproductive tract disorder [Recovered/Resolved]

NARRATIVE: CASE EVENT DATE: 20200501
